FAERS Safety Report 24610719 (Version 1)
Quarter: 2024Q4

REPORT INFORMATION
  Report Type: Spontaneous
  Country: CN (occurrence: CN)
  Receive Date: 20241112
  Receipt Date: 20241112
  Transmission Date: 20250115
  Serious: Yes (Death, Other)
  Sender: ALEXION PHARMACEUTICALS
  Company Number: CN-AstraZeneca-CH-00743925A

PATIENT

DRUGS (4)
  1. IMFINZI [Suspect]
     Active Substance: DURVALUMAB
     Dosage: UNK
     Route: 065
  2. IMFINZI [Suspect]
     Active Substance: DURVALUMAB
     Dosage: UNK
  3. IMFINZI [Suspect]
     Active Substance: DURVALUMAB
     Dosage: UNK
     Route: 065
  4. IMFINZI [Suspect]
     Active Substance: DURVALUMAB
     Dosage: UNK

REACTIONS (1)
  - Death [Fatal]
